FAERS Safety Report 17698372 (Version 1)
Quarter: 2020Q2

REPORT INFORMATION
  Report Type: Spontaneous
  Country: US (occurrence: US)
  Receive Date: 20200422
  Receipt Date: 20200422
  Transmission Date: 20200714
  Serious: Yes (Other)
  Sender: FDA-Public Use
  Company Number: None

PATIENT
  Age: 78 Year
  Sex: Female
  Weight: 79.38 kg

DRUGS (1)
  1. LEVOFLOXACIN (750MG TABLET) [Suspect]
     Active Substance: LEVOFLOXACIN
     Indication: BRONCHITIS
     Dosage: ?          QUANTITY:5 PILLS;OTHER FREQUENCY:1 TABLET EVERY DAY;?
     Route: 048
     Dates: start: 20200313, end: 20200315

REACTIONS (1)
  - Myalgia [None]
